FAERS Safety Report 11139044 (Version 1)
Quarter: 2015Q2

REPORT INFORMATION
  Report Type: Report from Study
  Country: US (occurrence: US)
  Receive Date: 20150527
  Receipt Date: 20150527
  Transmission Date: 20150821
  Serious: Yes (Other)
  Sender: FDA-Public Use
  Company Number: US-BIOGENIDEC-2015BI069348

PATIENT
  Age: 57 Year
  Sex: Female

DRUGS (1)
  1. TECFIDERA [Suspect]
     Active Substance: DIMETHYL FUMARATE
     Indication: MULTIPLE SCLEROSIS
     Route: 048
     Dates: start: 20140507, end: 20150201

REACTIONS (14)
  - Migraine [Recovered/Resolved]
  - Retinal tear [Recovered/Resolved]
  - Multiple sclerosis [Not Recovered/Not Resolved]
  - Mobility decreased [Recovered/Resolved]
  - Visual acuity reduced [Not Recovered/Not Resolved]
  - Skin lesion [Not Recovered/Not Resolved]
  - Muscle spasms [Unknown]
  - Diarrhoea [Recovered/Resolved]
  - Brain oedema [Recovered/Resolved]
  - Wound infection bacterial [Recovered/Resolved]
  - Faecal incontinence [Recovered/Resolved]
  - Blindness [Recovered/Resolved]
  - Flushing [Recovered/Resolved]
  - Headache [Recovered/Resolved]

NARRATIVE: CASE EVENT DATE: 2014
